FAERS Safety Report 10658112 (Version 1)
Quarter: 2014Q4

REPORT INFORMATION
  Report Type: Spontaneous
  Country: US (occurrence: US)
  Receive Date: 20141217
  Receipt Date: 20141217
  Transmission Date: 20150529
  Serious: No
  Sender: FDA-Public Use
  Company Number: US-GLAXOSMITHKLINE-A1063631A

PATIENT

DRUGS (2)
  1. IMODIUM [Suspect]
     Active Substance: LOPERAMIDE HYDROCHLORIDE
     Indication: DIARRHOEA
  2. VOTRIENT [Suspect]
     Active Substance: PAZOPANIB HYDROCHLORIDE
     Indication: OVARIAN CANCER
     Dosage: 800 MG (4 TABLETS OF 200 MG)

REACTIONS (7)
  - Diarrhoea [Unknown]
  - Pruritus [Unknown]
  - Alopecia [Unknown]
  - Flatulence [Unknown]
  - Paraesthesia [Unknown]
  - Constipation [Unknown]
  - Hair growth abnormal [Unknown]
